FAERS Safety Report 24642015 (Version 2)
Quarter: 2024Q4

REPORT INFORMATION
  Report Type: Spontaneous
  Country: CN (occurrence: CN)
  Receive Date: 20241120
  Receipt Date: 20241122
  Transmission Date: 20250114
  Serious: Yes (Death, Other)
  Sender: INCYTE
  Company Number: CN-002147023-NVSC2024CN216769

PATIENT

DRUGS (18)
  1. RUXOLITINIB [Suspect]
     Active Substance: RUXOLITINIB
     Indication: Natural killer-cell leukaemia
     Dosage: 10 MG, BID
     Route: 048
  2. RUXOLITINIB [Suspect]
     Active Substance: RUXOLITINIB
     Indication: Haemophagocytic lymphohistiocytosis
  3. ETOPOSIDE [Suspect]
     Active Substance: ETOPOSIDE
     Indication: Natural killer-cell leukaemia
     Dosage: 100 MG/M2, QW, FOR 2 WEEKS
     Route: 042
  4. ETOPOSIDE [Suspect]
     Active Substance: ETOPOSIDE
     Indication: Haemophagocytic lymphohistiocytosis
  5. DEXAMETHASONE [Suspect]
     Active Substance: DEXAMETHASONE
     Indication: Natural killer-cell leukaemia
     Dosage: 15 MG/M2, QD
     Route: 042
  6. DEXAMETHASONE [Suspect]
     Active Substance: DEXAMETHASONE
     Indication: Haemophagocytic lymphohistiocytosis
  7. GEMCITABINE [Suspect]
     Active Substance: GEMCITABINE
     Indication: Natural killer-cell leukaemia
     Dosage: 0.5?G/M2
     Route: 065
  8. GEMCITABINE [Suspect]
     Active Substance: GEMCITABINE
     Indication: Haemophagocytic lymphohistiocytosis
  9. PEGASPARGASE [Suspect]
     Active Substance: PEGASPARGASE
     Indication: Natural killer-cell leukaemia
     Dosage: 2500?IU/M2
     Route: 030
  10. PEGASPARGASE [Suspect]
     Active Substance: PEGASPARGASE
     Indication: Haemophagocytic lymphohistiocytosis
  11. CISPLATIN [Suspect]
     Active Substance: CISPLATIN
     Indication: Natural killer-cell leukaemia
     Dosage: 20 MG/M2
     Route: 042
  12. CISPLATIN [Suspect]
     Active Substance: CISPLATIN
     Indication: Haemophagocytic lymphohistiocytosis
  13. METHOTREXATE [Suspect]
     Active Substance: METHOTREXATE
     Indication: Natural killer-cell leukaemia
     Dosage: UNK
     Route: 065
  14. METHOTREXATE [Suspect]
     Active Substance: METHOTREXATE
     Indication: Haemophagocytic lymphohistiocytosis
  15. IFOSFAMIDE [Suspect]
     Active Substance: IFOSFAMIDE
     Indication: Natural killer-cell leukaemia
     Dosage: UNK
     Route: 065
  16. IFOSFAMIDE [Suspect]
     Active Substance: IFOSFAMIDE
     Indication: Haemophagocytic lymphohistiocytosis
  17. ASPARAGINASE [Suspect]
     Active Substance: ASPARAGINASE
     Indication: Natural killer-cell leukaemia
     Dosage: UNK
     Route: 065
  18. ASPARAGINASE [Suspect]
     Active Substance: ASPARAGINASE
     Indication: Haemophagocytic lymphohistiocytosis

REACTIONS (7)
  - Natural killer-cell leukaemia [Fatal]
  - Malignant neoplasm progression [Fatal]
  - Haemophagocytic lymphohistiocytosis [Fatal]
  - Pneumonia [Unknown]
  - Neutropenia [Unknown]
  - Product use in unapproved indication [Unknown]
  - Thrombocytopenia [Unknown]
